FAERS Safety Report 18734997 (Version 1)
Quarter: 2021Q1

REPORT INFORMATION
  Report Type: Spontaneous
  Country: US (occurrence: US)
  Receive Date: 20210113
  Receipt Date: 20210113
  Transmission Date: 20210419
  Serious: No
  Sender: FDA-Public Use
  Company Number: None

PATIENT
  Age: 68 Year
  Sex: Female
  Weight: 58.5 kg

DRUGS (18)
  1. P5P50 [Concomitant]
  2. OCUVITE [Concomitant]
     Active Substance: VITAMINS
  3. ZINC. [Concomitant]
     Active Substance: ZINC
  4. PANTROPRAZOLE [Concomitant]
  5. VITAMIN D3 [Concomitant]
     Active Substance: CHOLECALCIFEROL
  6. L?THYROXINE [Concomitant]
     Active Substance: LEVOTHYROXINE
  7. FLUTICASONE PROPIONATE. [Concomitant]
     Active Substance: FLUTICASONE PROPIONATE
  8. HYDROXYCHLOROQUINE SUL [Concomitant]
  9. MAGNESIUM CITRATE. [Concomitant]
     Active Substance: MAGNESIUM CITRATE
  10. MAGNESIUM GLCINATE [Concomitant]
  11. ALIGN PROBIOTIC [Concomitant]
  12. VENLAFAXINE HCL WE [Concomitant]
  13. CASIRIVIMAB AND IMDEVIMAB [Suspect]
     Active Substance: CASIRIVIMAB\IMDEVIMAB
     Indication: COVID-19
     Dosage: ?          OTHER ROUTE:IV INFUSION?
     Route: 042
     Dates: start: 20210111, end: 20210111
  14. ALBUTEROL INHALER [Concomitant]
     Active Substance: ALBUTEROL
  15. ZYRTEC [Concomitant]
     Active Substance: CETIRIZINE HYDROCHLORIDE
  16. ADRENPLUS?300 [Concomitant]
  17. CAL?6+MAG [Concomitant]
  18. VITAMIN C [Concomitant]
     Active Substance: ASCORBIC ACID

REACTIONS (3)
  - Headache [None]
  - Pyrexia [None]
  - Nausea [None]

NARRATIVE: CASE EVENT DATE: 20210112
